FAERS Safety Report 17820080 (Version 4)
Quarter: 2020Q3

REPORT INFORMATION
  Report Type: Spontaneous
  Country: US (occurrence: US)
  Receive Date: 20200525
  Receipt Date: 20200729
  Transmission Date: 20201102
  Serious: Yes (Hospitalization, Other)
  Sender: FDA-Public Use
  Company Number: US-AMGEN-USASP2020081456

PATIENT
  Age: 73 Year
  Sex: Female
  Weight: 92.97 kg

DRUGS (1)
  1. REPATHA [Suspect]
     Active Substance: EVOLOCUMAB
     Indication: HYPERLIPIDAEMIA
     Dosage: 140 MILLIGRAM, Q2WK
     Route: 065

REACTIONS (8)
  - Accidental exposure to product [Unknown]
  - Injection site discolouration [Unknown]
  - Malaise [Unknown]
  - Overweight [Unknown]
  - Breast reconstruction [Unknown]
  - Device use error [Unknown]
  - Deep vein thrombosis [Unknown]
  - Injury associated with device [Unknown]

NARRATIVE: CASE EVENT DATE: 20190705
